FAERS Safety Report 23735071 (Version 1)
Quarter: 2024Q2

REPORT INFORMATION
  Report Type: Spontaneous
  Country: US (occurrence: US)
  Receive Date: 20240412
  Receipt Date: 20240412
  Transmission Date: 20240716
  Serious: No
  Sender: FDA-Public Use
  Company Number: US-ViiV Healthcare Limited-109850

PATIENT
  Sex: Male

DRUGS (2)
  1. RILPIVIRINE [Suspect]
     Active Substance: RILPIVIRINE
     Indication: Product used for unknown indication
     Dosage: UNK UNK, Q2M,600 MG OF CABOTEGRAVIR AND 900 MG OF RILPIVIRINE
     Route: 030
  2. CABOTEGRAVIR [Suspect]
     Active Substance: CABOTEGRAVIR
     Indication: Product used for unknown indication
     Dosage: UNK UNK, Q2M,600 MG OF CABOTEGRAVIR AND 900 MG OF RILPIVIRINE
     Route: 030

REACTIONS (2)
  - Injection site pain [Recovered/Resolved]
  - Chills [Recovered/Resolved]
